FAERS Safety Report 9586058 (Version 1)
Quarter: 2013Q4

REPORT INFORMATION
  Report Type: Spontaneous
  Country: US (occurrence: US)
  Receive Date: 20131003
  Receipt Date: 20131003
  Transmission Date: 20140711
  Serious: Yes (Hospitalization, Disabling)
  Sender: FDA-Public Use
  Company Number: US-AMGEN-USASP2013068895

PATIENT
  Age: 54 Year
  Sex: Male

DRUGS (2)
  1. ENBREL [Suspect]
     Indication: PSORIATIC ARTHROPATHY
     Dosage: 50 MG, EVERY 8 DAYS
     Route: 065
     Dates: start: 2006
  2. HUMIRA [Concomitant]
     Dosage: UNK

REACTIONS (2)
  - Headache [Not Recovered/Not Resolved]
  - Cellulitis [Not Recovered/Not Resolved]
